FAERS Safety Report 11814351 (Version 1)
Quarter: 2015Q4

REPORT INFORMATION
  Report Type: Spontaneous
  Country: BR (occurrence: BR)
  Receive Date: 20151209
  Receipt Date: 20151209
  Transmission Date: 20160305
  Serious: Yes (Other)
  Sender: FDA-Public Use
  Company Number: BR-JNJFOC-20151204338

PATIENT
  Age: 46 Year
  Sex: Female

DRUGS (2)
  1. REMICADE [Suspect]
     Active Substance: INFLIXIMAB
     Indication: CROHN^S DISEASE
     Route: 042
     Dates: start: 2013
  2. AZATHIOPRINE. [Concomitant]
     Active Substance: AZATHIOPRINE
     Route: 065
     Dates: start: 20151202

REACTIONS (6)
  - Wound [Unknown]
  - Adverse drug reaction [Unknown]
  - Skin lesion [Unknown]
  - Pruritus [Unknown]
  - Skin ulcer [Unknown]
  - Secretion discharge [Unknown]

NARRATIVE: CASE EVENT DATE: 20151124
